FAERS Safety Report 11898737 (Version 3)
Quarter: 2016Q1

REPORT INFORMATION
  Report Type: Spontaneous
  Country: CA (occurrence: CA)
  Receive Date: 20160108
  Receipt Date: 20160223
  Transmission Date: 20160526
  Serious: Yes (Other)
  Sender: FDA-Public Use
  Company Number: CA-JNJFOC-20160103203

PATIENT
  Age: 46 Year
  Sex: Female

DRUGS (2)
  1. RISPERDAL [Suspect]
     Active Substance: RISPERIDONE
     Indication: SCHIZOPHRENIA
     Route: 048
     Dates: start: 200407, end: 200502
  2. LEVOMEPROMAZINE [Concomitant]
     Active Substance: LEVOMEPROMAZINE
     Indication: INSOMNIA
     Dosage: 25 MG BEDTIME
     Route: 065
     Dates: start: 200402, end: 200410

REACTIONS (4)
  - Breast cancer [Unknown]
  - Amenorrhoea [Recovered/Resolved]
  - Neoplasm malignant [Unknown]
  - Galactorrhoea [Recovered/Resolved]

NARRATIVE: CASE EVENT DATE: 200410
